FAERS Safety Report 15755470 (Version 1)
Quarter: 2018Q4

REPORT INFORMATION
  Report Type: Spontaneous
  Country: US (occurrence: US)
  Receive Date: 20181224
  Receipt Date: 20181224
  Transmission Date: 20190205
  Serious: Yes (Other)
  Sender: FDA-Public Use
  Company Number: US-ASTELLAS-2018US054041

PATIENT
  Age: 59 Year
  Sex: Male

DRUGS (2)
  1. MYCOPHENOLATE [Concomitant]
     Active Substance: MYCOPHENOLIC ACID
     Indication: PROPHYLAXIS AGAINST GRAFT VERSUS HOST DISEASE
     Dosage: 15 MG/KG, UNKNOWN FREQ. (TAPERED AFTER DAY 40+)
     Route: 065
  2. TACROLIMUS. [Suspect]
     Active Substance: TACROLIMUS
     Indication: PROPHYLAXIS AGAINST GRAFT VERSUS HOST DISEASE
     Dosage: 0.04 MG/KG, UNKNOWN FREQ. (CONTINUOUS UNTIL DAY 100+)
     Route: 065

REACTIONS (3)
  - Donor specific antibody present [Unknown]
  - Product use in unapproved indication [Unknown]
  - Transplant failure [Unknown]
